FAERS Safety Report 26092150 (Version 1)
Quarter: 2025Q4

REPORT INFORMATION
  Report Type: Spontaneous
  Country: US (occurrence: None)
  Receive Date: 20251125
  Receipt Date: 20251125
  Transmission Date: 20260117
  Serious: Yes (Hospitalization)
  Sender: FDA-CTU
  Company Number: None

PATIENT

DRUGS (1)
  1. TARLATAMAB-DLLE [Suspect]
     Active Substance: TARLATAMAB-DLLE

REACTIONS (4)
  - Chills [None]
  - Chills [None]
  - Vomiting [None]
  - Hypertension [None]

NARRATIVE: CASE EVENT DATE: 20251103
